FAERS Safety Report 10185679 (Version 1)
Quarter: 2014Q2

REPORT INFORMATION
  Report Type: Spontaneous
  Country: US (occurrence: None)
  Receive Date: 20140520
  Receipt Date: 20140520
  Transmission Date: 20141212
  Serious: Yes (Hospitalization)
  Sender: FDA-Public Use
  Company Number: None

PATIENT
  Age: 70 Year
  Sex: Female
  Weight: 71.8 kg

DRUGS (4)
  1. NAFCILLIN [Suspect]
     Indication: STAPHYLOCOCCAL INFECTION
     Route: 042
     Dates: start: 20140310, end: 20140331
  2. NAFCILLIN [Suspect]
     Indication: PNEUMONIA
     Route: 042
     Dates: start: 20140310, end: 20140331
  3. NAFCILLIN [Suspect]
     Indication: STAPHYLOCOCCAL INFECTION
     Route: 042
     Dates: start: 20140331, end: 20140407
  4. MICAFUNGIN [Concomitant]

REACTIONS (1)
  - Neutropenia [None]
